FAERS Safety Report 20814032 (Version 1)
Quarter: 2022Q2

REPORT INFORMATION
  Report Type: Spontaneous
  Country: IE (occurrence: IE)
  Receive Date: 20220511
  Receipt Date: 20220511
  Transmission Date: 20220721
  Serious: Yes (Other)
  Sender: FDA-Public Use
  Company Number: IE-BRISTOL-MYERS SQUIBB COMPANY-2022-020164

PATIENT
  Age: 74 Year
  Sex: Male
  Weight: 85.728 kg

DRUGS (3)
  1. PACLITAXEL [Suspect]
     Active Substance: PACLITAXEL
     Indication: Angiosarcoma
     Dosage: 3 WEEK REGIMEN AND ONE WEEK OFF
     Route: 042
     Dates: start: 20211126
  2. VITAMIN C [Concomitant]
     Active Substance: ASCORBIC ACID
     Indication: Product used for unknown indication
     Route: 065
  3. VITAMIN D [Concomitant]
     Active Substance: VITAMIN D NOS
     Indication: Product used for unknown indication
     Route: 065

REACTIONS (8)
  - Haemorrhage [Unknown]
  - Malignant neoplasm progression [Unknown]
  - Product administration error [Unknown]
  - Mass [Unknown]
  - Wound [Unknown]
  - Rash [Unknown]
  - Head injury [Unknown]
  - Scab [Unknown]
